FAERS Safety Report 16561581 (Version 1)
Quarter: 2019Q3

REPORT INFORMATION
  Report Type: Spontaneous
  Country: US (occurrence: US)
  Receive Date: 20190711
  Receipt Date: 20190711
  Transmission Date: 20191004
  Serious: Yes (Hospitalization, Other)
  Sender: FDA-Public Use
  Company Number: US-GILEAD-2019-0417742

PATIENT
  Age: 15 Year
  Sex: Female

DRUGS (2)
  1. CAYSTON [Suspect]
     Active Substance: AZTREONAM
     Indication: PRODUCT USED FOR UNKNOWN INDICATION
     Route: 065
  2. CEFTAROLINE FOSAMIL [Suspect]
     Active Substance: CEFTAROLINE FOSAMIL
     Indication: INFECTION
     Dosage: 2 DOSES
     Route: 042

REACTIONS (4)
  - Tongue pruritus [Not Recovered/Not Resolved]
  - Cystic fibrosis [Unknown]
  - Lung infection [Unknown]
  - Lip pruritus [Not Recovered/Not Resolved]
